FAERS Safety Report 15292711 (Version 1)
Quarter: 2018Q3

REPORT INFORMATION
  Report Type: Spontaneous
  Country: JP (occurrence: JP)
  Receive Date: 20180819
  Receipt Date: 20180819
  Transmission Date: 20181010
  Serious: Yes (Hospitalization, Other)
  Sender: FDA-Public Use
  Company Number: JP-TOLMAR, INC.-TOLG20180458

PATIENT
  Age: 86 Year
  Sex: Female

DRUGS (1)
  1. METRONIDAZOLE. [Suspect]
     Active Substance: METRONIDAZOLE
     Indication: CLOSTRIDIUM DIFFICILE COLITIS
     Dosage: UNKNOWN
     Route: 065

REACTIONS (6)
  - Eye movement disorder [Recovering/Resolving]
  - Toxic encephalopathy [Recovered/Resolved with Sequelae]
  - Muscular weakness [Not Recovered/Not Resolved]
  - Epilepsy [Unknown]
  - Dysarthria [Recovered/Resolved with Sequelae]
  - Disorientation [Recovered/Resolved with Sequelae]
